FAERS Safety Report 4644480-5 (Version None)
Quarter: 2005Q2

REPORT INFORMATION
  Report Type: 
  Country: None (occurrence: None)
  Receive Date: 20050425
  Receipt Date: 20050425
  Transmission Date: 20051028
  Serious: Yes (Disabling)
  Sender: FDA-Public Use
  Company Number: None

PATIENT
  Age: 63 Year
  Sex: Female
  Weight: 81.6475 kg

DRUGS (11)
  1. ZOCOR [Suspect]
     Indication: BLOOD CHOLESTEROL INCREASED
     Dosage: 1 , ORAL
     Route: 048
     Dates: start: 20041201
  2. ZETIA [Suspect]
     Dosage: 1, ORAL
     Route: 048
     Dates: start: 20050401
  3. NEXIUM [Concomitant]
  4. ZELNORM [Concomitant]
  5. MIRALAX [Concomitant]
  6. MYLANTA [Concomitant]
  7. ALAVIDE [Concomitant]
  8. ZOLOFT [Concomitant]
  9. WELLBUTRIN [Concomitant]
  10. PROMETRIUM [Concomitant]
  11. PREMARIN [Concomitant]

REACTIONS (7)
  - ASTHENIA [None]
  - FATIGUE [None]
  - HEADACHE [None]
  - MEMORY IMPAIRMENT [None]
  - MOBILITY DECREASED [None]
  - MUSCULAR WEAKNESS [None]
  - PAIN [None]
